FAERS Safety Report 14241376 (Version 1)
Quarter: 2017Q4

REPORT INFORMATION
  Report Type: Spontaneous
  Country: FR (occurrence: FR)
  Receive Date: 20171130
  Receipt Date: 20171130
  Transmission Date: 20180321
  Serious: Yes (Other)
  Sender: FDA-Public Use
  Company Number: FR-MERCK KGAA-2036431

PATIENT
  Age: 54 Year
  Sex: Female

DRUGS (1)
  1. NOVOTHYROX [Suspect]
     Active Substance: LEVOTHYROXINE SODIUM
     Indication: PRODUCT USED FOR UNKNOWN INDICATION

REACTIONS (18)
  - Loss of personal independence in daily activities [None]
  - Aggression [None]
  - Impatience [None]
  - Heart rate increased [None]
  - Muscle spasms [None]
  - Nervousness [None]
  - Presyncope [None]
  - Disturbance in attention [None]
  - Hypoacusis [None]
  - Headache [None]
  - Myalgia [None]
  - Fear [None]
  - Sleep disorder [None]
  - Blood thyroid stimulating hormone decreased [None]
  - Pain in extremity [None]
  - Thyroxine increased [None]
  - Malaise [None]
  - Mental fatigue [None]

NARRATIVE: CASE EVENT DATE: 20170602
